FAERS Safety Report 6588931-8 (Version None)
Quarter: 2010Q1

REPORT INFORMATION
  Report Type: 
  Country: None (occurrence: None)
  Receive Date: 20100218
  Receipt Date: 20100209
  Transmission Date: 20100710
  Serious: Yes (Other)
  Sender: FDA-Public Use
  Company Number: JP-PFIZER INC-2010019477

PATIENT
  Age: 62 Year
  Sex: Female
  Weight: 48 kg

DRUGS (3)
  1. RIFABUTIN [Suspect]
     Indication: MYCOBACTERIUM AVIUM COMPLEX INFECTION
     Dosage: 150 MG, 1X/DAY
     Route: 048
     Dates: start: 20090401, end: 20090413
  2. KLARICID [Concomitant]
     Route: 048
     Dates: start: 20090401, end: 20090413
  3. EBUTOL [Concomitant]
     Route: 048
     Dates: start: 20090401, end: 20090413

REACTIONS (1)
  - BONE MARROW FAILURE [None]
